FAERS Safety Report 4988640-2 (Version None)
Quarter: 2006Q2

REPORT INFORMATION
  Report Type: 
  Country: None (occurrence: None)
  Receive Date: 20060502
  Receipt Date: 20060427
  Transmission Date: 20061013
  Serious: Yes (Other)
  Sender: FDA-Public Use
  Company Number: US-BRISTOL-MYERS SQUIBB COMPANY-13359450

PATIENT
  Age: 46 Year
  Sex: Male
  Weight: 116 kg

DRUGS (4)
  1. ERBITUX [Suspect]
     Indication: COLON CANCER RECURRENT
     Route: 042
     Dates: start: 20060427, end: 20060427
  2. BENADRYL [Concomitant]
     Indication: PREMEDICATION
     Route: 042
     Dates: start: 20060427, end: 20060427
  3. HYDROCODONE [Concomitant]
  4. ZANTAC [Concomitant]
     Indication: PREMEDICATION
     Route: 042
     Dates: start: 20060427, end: 20060427

REACTIONS (4)
  - PRURITUS [None]
  - RASH [None]
  - SKIN LESION [None]
  - STOMATITIS [None]
